FAERS Safety Report 5670099-3 (Version None)
Quarter: 2008Q1

REPORT INFORMATION
  Report Type: 
  Country: None (occurrence: None)
  Receive Date: 20080312
  Receipt Date: 20080302
  Transmission Date: 20080703
  Serious: Yes (Hospitalization)
  Sender: FDA-Public Use
  Company Number: 20084820

PATIENT
  Age: 71 Year
  Sex: Female

DRUGS (1)
  1. LIORESAL [Suspect]
     Indication: MUSCLE SPASTICITY
     Dosage: VAIOUS MCG, DAILY, INTRATHECAL
     Route: 037
     Dates: start: 20050101

REACTIONS (4)
  - COMA [None]
  - DRUG SCREEN POSITIVE [None]
  - HYPOTENSION [None]
  - PYREXIA [None]
